FAERS Safety Report 8581076-7 (Version None)
Quarter: 2012Q2

REPORT INFORMATION
  Report Type: 
  Country: None (occurrence: None)
  Receive Date: 20120423
  Receipt Date: 20100414
  Transmission Date: 20120825
  Serious: Yes (Hospitalization)
  Sender: FDA-Public Use
  Company Number: PHHY2010US23867

PATIENT
  Age: 26 Year
  Sex: Female

DRUGS (1)
  1. EXJADE [Suspect]
     Indication: SICKLE CELL ANAEMIA
     Dosage: 750 MG/DAY, ORAL
     Route: 048
     Dates: start: 20090921

REACTIONS (1)
  - SICKLE CELL ANAEMIA WITH CRISIS [None]
